FAERS Safety Report 9729415 (Version 1)
Quarter: 2013Q4

REPORT INFORMATION
  Report Type: Spontaneous
  Country: US (occurrence: US)
  Receive Date: 20131204
  Receipt Date: 20131204
  Transmission Date: 20140711
  Serious: No
  Sender: FDA-Public Use
  Company Number: US-GILEAD-2009-0021161

PATIENT
  Sex: Female
  Weight: 124.28 kg

DRUGS (21)
  1. LETAIRIS [Suspect]
     Indication: PULMONARY ARTERIAL HYPERTENSION
     Route: 048
     Dates: start: 20090220
  2. REMODULIN [Concomitant]
     Indication: PULMONARY ARTERIAL HYPERTENSION
  3. REVATIO [Concomitant]
  4. COUMADIN [Concomitant]
  5. BUMEX [Concomitant]
  6. ZAROXOLYN [Concomitant]
  7. OXYGEN [Concomitant]
  8. FLOVENT [Concomitant]
  9. PROVENTIL [Concomitant]
  10. PLO GEL [Concomitant]
  11. CYMBALTA [Concomitant]
  12. BENADRYL [Concomitant]
  13. ATIVAN [Concomitant]
  14. LORTAB [Concomitant]
  15. SOMA [Concomitant]
  16. IMODIUM [Concomitant]
  17. NASACORT [Concomitant]
  18. K-DUR [Concomitant]
  19. LOMOTIL [Concomitant]
  20. AMBIEN [Concomitant]
  21. ATARAX [Concomitant]

REACTIONS (3)
  - Nausea [Unknown]
  - Headache [Unknown]
  - Flushing [Unknown]
